FAERS Safety Report 7563070-8 (Version None)
Quarter: 2011Q2

REPORT INFORMATION
  Report Type: 
  Country: None (occurrence: None)
  Receive Date: 20110615
  Receipt Date: 20110602
  Transmission Date: 20111010
  Serious: Yes (Life-Threatening, Hospitalization, Other)
  Sender: FDA-Public Use
  Company Number: 2011P01006954

PATIENT
  Sex: Male

DRUGS (2)
  1. FENTANYL [Suspect]
     Indication: PAIN
     Dosage: 1 PATCH;Q72H;TDER
     Route: 062
     Dates: start: 20090529
  2. MORPHINE [Concomitant]

REACTIONS (10)
  - UNRESPONSIVE TO STIMULI [None]
  - AMNESIA [None]
  - CARDIAC ARREST [None]
  - OVERDOSE [None]
  - ISCHAEMIC HEPATITIS [None]
  - RESPIRATORY FAILURE [None]
  - PAIN [None]
  - MULTIPLE INJURIES [None]
  - RENAL FAILURE ACUTE [None]
  - NERVOUS SYSTEM DISORDER [None]
